FAERS Safety Report 15841403 (Version 2)
Quarter: 2019Q1

REPORT INFORMATION
  Report Type: Spontaneous
  Country: US (occurrence: US)
  Receive Date: 20190118
  Receipt Date: 20190208
  Transmission Date: 20190417
  Serious: Yes (Hospitalization)
  Sender: FDA-Public Use
  Company Number: US-SAKK-2019SA010560AA

PATIENT
  Age: 44 Year
  Sex: Female

DRUGS (2)
  1. HUMALOG [Concomitant]
     Active Substance: INSULIN LISPRO
     Indication: DIABETES MELLITUS
     Dosage: UNK UNK, UNK
     Route: 065
  2. LANTUS [Suspect]
     Active Substance: INSULIN GLARGINE
     Indication: DIABETES MELLITUS
     Dosage: 70 U, QD
     Route: 065

REACTIONS (9)
  - Blood glucose decreased [Unknown]
  - Eye disorder [Unknown]
  - Hyperhidrosis [Unknown]
  - Loss of consciousness [Unknown]
  - Vomiting [Unknown]
  - Haemorrhage [Unknown]
  - Malaise [Unknown]
  - Diarrhoea [Unknown]
  - Apparent death [Unknown]

NARRATIVE: CASE EVENT DATE: 20190105
